FAERS Safety Report 4801735-9 (Version None)
Quarter: 2005Q4

REPORT INFORMATION
  Report Type: 
  Country: None (occurrence: None)
  Receive Date: 20051014
  Receipt Date: 20051014
  Transmission Date: 20060501
  Serious: Yes (Hospitalization, Other)
  Sender: FDA-Public Use
  Company Number: None

PATIENT
  Age: 84 Year
  Sex: Male
  Weight: 86 kg

DRUGS (1)
  1. TAXOL [Suspect]
     Dates: start: 20051010, end: 20051010

REACTIONS (4)
  - CARDIAC OPERATION [None]
  - DEVICE FAILURE [None]
  - MEDICAL DEVICE COMPLICATION [None]
  - PROCEDURAL COMPLICATION [None]
